FAERS Safety Report 11972738 (Version 4)
Quarter: 2016Q2

REPORT INFORMATION
  Report Type: Spontaneous
  Country: CA (occurrence: CA)
  Receive Date: 20160128
  Receipt Date: 20160401
  Transmission Date: 20160815
  Serious: Yes (Death, Hospitalization)
  Sender: FDA-Public Use
  Company Number: CA-PFIZER INC-2015438556

PATIENT
  Age: 62 Year
  Sex: Male

DRUGS (3)
  1. APO-DOMPERIDONE [Concomitant]
     Dosage: 10 MG, 4X/DAY (1 BEFORE MEALS AND AT BED TIME)
     Dates: start: 20151207
  2. SUTENT [Suspect]
     Active Substance: SUNITINIB MALATE
     Indication: METASTATIC RENAL CELL CARCINOMA
     Dosage: 50 MG, 1X/DAY
     Dates: start: 20151207
  3. MYLAN-OMEPRAZOLE DR [Concomitant]
     Dosage: 20 MG, 1X/DAY
     Dates: start: 20151207

REACTIONS (10)
  - Pre-existing condition improved [Not Recovered/Not Resolved]
  - Disease progression [Fatal]
  - Infection [Not Recovered/Not Resolved]
  - Fatigue [Not Recovered/Not Resolved]
  - Therapeutic response unexpected [Not Recovered/Not Resolved]
  - Fluid retention [Not Recovered/Not Resolved]
  - Metastatic renal cell carcinoma [Fatal]
  - Bladder obstruction [Not Recovered/Not Resolved]
  - Influenza [Unknown]
  - Pruritus [Recovered/Resolved]

NARRATIVE: CASE EVENT DATE: 2015
